FAERS Safety Report 18184868 (Version 29)
Quarter: 2021Q2

REPORT INFORMATION
  Report Type: Report from Study
  Country: CN (occurrence: CN)
  Receive Date: 20200824
  Receipt Date: 20210616
  Transmission Date: 20210717
  Serious: Yes (Death, Hospitalization, Other)
  Sender: FDA-Public Use
  Company Number: CN-ROCHE-2662582

PATIENT
  Age: 68 Year
  Sex: Male
  Weight: 59.4 kg

DRUGS (139)
  1. PARACETAMOL AND DIHYDROCODEINE TARTRATE [Concomitant]
     Dates: start: 20200919, end: 20200925
  2. PALONOSETRON HYDROCHLORIDE. [Concomitant]
     Active Substance: PALONOSETRON HYDROCHLORIDE
     Dates: start: 20201222, end: 20201222
  3. DEXAMETHASONE SODIUM PHOSPHATE. [Concomitant]
     Active Substance: DEXAMETHASONE SODIUM PHOSPHATE
     Route: 042
     Dates: start: 20200828, end: 20200828
  4. DEXAMETHASONE SODIUM PHOSPHATE. [Concomitant]
     Active Substance: DEXAMETHASONE SODIUM PHOSPHATE
     Route: 042
     Dates: start: 20210102, end: 20210102
  5. DEXAMETHASONE SODIUM PHOSPHATE. [Concomitant]
     Active Substance: DEXAMETHASONE SODIUM PHOSPHATE
     Dates: start: 20210223, end: 20210223
  6. OMEPRAZOLE SODIUM [Concomitant]
     Active Substance: OMEPRAZOLE SODIUM
     Dates: start: 20200828, end: 20200828
  7. OMEPRAZOLE SODIUM [Concomitant]
     Active Substance: OMEPRAZOLE SODIUM
     Dates: start: 20210102, end: 20210102
  8. OMEPRAZOLE SODIUM [Concomitant]
     Active Substance: OMEPRAZOLE SODIUM
     Dates: start: 20210223, end: 20210223
  9. POLYENE PHOSPHATIDYLCHOLINE [Concomitant]
     Active Substance: PHOSPHOLIPID
     Dates: start: 20201202, end: 20201202
  10. FOLIC ACID. [Concomitant]
     Active Substance: FOLIC ACID
     Dates: start: 20200819, end: 20200825
  11. FOLIC ACID. [Concomitant]
     Active Substance: FOLIC ACID
     Dates: start: 20201222, end: 20201229
  12. CALCIUM GLUCONATE. [Concomitant]
     Active Substance: CALCIUM GLUCONATE
     Dates: start: 20201014, end: 20201014
  13. TRIMETAZIDINE HYDROCHLORIDE [Concomitant]
     Active Substance: TRIMETAZIDINE DIHYDROCHLORIDE
     Dates: start: 20210318, end: 20210322
  14. RECOMBINANT HUMAN INTERLEUKIN?11 [Concomitant]
     Active Substance: OPRELVEKIN
     Dates: start: 20210118, end: 20210120
  15. RECOMBINANT HUMAN INTERLEUKIN?11 [Concomitant]
     Active Substance: OPRELVEKIN
     Dates: start: 20210122, end: 20210128
  16. RECOMBINANT HUMAN INTERLEUKIN?11 [Concomitant]
     Active Substance: OPRELVEKIN
     Dates: start: 20210226, end: 20210307
  17. LEVOFLOXACIN. [Concomitant]
     Active Substance: LEVOFLOXACIN
     Indication: COUGH
     Dates: start: 20200710, end: 20200715
  18. PALONOSETRON HYDROCHLORIDE. [Concomitant]
     Active Substance: PALONOSETRON HYDROCHLORIDE
     Dates: start: 20200730, end: 20200730
  19. FOLIC ACID. [Concomitant]
     Active Substance: FOLIC ACID
     Dates: start: 20200729, end: 20200806
  20. MEGESTROL ACETATE. [Concomitant]
     Active Substance: MEGESTROL ACETATE
     Dates: start: 20200828, end: 20200903
  21. MEGESTROL ACETATE. [Concomitant]
     Active Substance: MEGESTROL ACETATE
     Dates: start: 20210113, end: 20210119
  22. MEGESTROL ACETATE. [Concomitant]
     Active Substance: MEGESTROL ACETATE
     Dates: start: 20210202, end: 20210208
  23. RECOMBINANT HUMAN GRANULOCYTE COLONY?STIMULATING FACTOR INJECTION (REB [Concomitant]
     Dates: start: 20201125, end: 20201125
  24. RECOMBINANT HUMAN GRANULOCYTE COLONY?STIMULATING FACTOR INJECTION (REB [Concomitant]
     Dates: start: 20201130, end: 20201130
  25. RECOMBINANT HUMAN GRANULOCYTE COLONY?STIMULATING FACTOR INJECTION (REB [Concomitant]
     Dates: start: 20201225, end: 20201225
  26. RECOMBINANT HUMAN GRANULOCYTE COLONY?STIMULATING FACTOR INJECTION (REB [Concomitant]
     Dates: start: 20210122, end: 20210128
  27. VITAMIN D3 [Concomitant]
     Active Substance: CHOLECALCIFEROL
     Indication: COUGH
     Dates: start: 20201015, end: 20201021
  28. RECOMBINANT HUMAN INTERLEUKIN?11 [Concomitant]
     Active Substance: OPRELVEKIN
     Dates: start: 20201116, end: 20201122
  29. RECOMBINANT HUMAN INTERLEUKIN?11 [Concomitant]
     Active Substance: OPRELVEKIN
     Dates: start: 20201231, end: 20210104
  30. PARACETAMOL AND DIHYDROCODEINE TARTRATE [Concomitant]
     Indication: COUGH
     Dates: start: 20200710, end: 20200721
  31. PARACETAMOL AND DIHYDROCODEINE TARTRATE [Concomitant]
     Dates: start: 20201208, end: 20201212
  32. VITAMIN B12 [Concomitant]
     Active Substance: CYANOCOBALAMIN
     Dates: start: 20200730, end: 20200730
  33. PALONOSETRON HYDROCHLORIDE. [Concomitant]
     Active Substance: PALONOSETRON HYDROCHLORIDE
     Dates: start: 20200828, end: 20200828
  34. DEXAMETHASONE SODIUM PHOSPHATE. [Concomitant]
     Active Substance: DEXAMETHASONE SODIUM PHOSPHATE
     Route: 042
     Dates: start: 20200918, end: 20200918
  35. OMEPRAZOLE SODIUM [Concomitant]
     Active Substance: OMEPRAZOLE SODIUM
     Dates: start: 20210112, end: 20210112
  36. METOCLOPRAMIDE. [Concomitant]
     Active Substance: METOCLOPRAMIDE
     Dates: start: 20200918, end: 20200918
  37. METOCLOPRAMIDE. [Concomitant]
     Active Substance: METOCLOPRAMIDE
     Dates: start: 20201014, end: 20201014
  38. POLYENE PHOSPHATIDYLCHOLINE [Concomitant]
     Active Substance: PHOSPHOLIPID
     Dates: start: 20210223, end: 20210223
  39. POLYENE PHOSPHATIDYLCHOLINE [Concomitant]
     Active Substance: PHOSPHOLIPID
     Dates: start: 20201222, end: 20201222
  40. FOLIC ACID. [Concomitant]
     Active Substance: FOLIC ACID
     Dates: start: 20200828, end: 20200903
  41. FOLIC ACID. [Concomitant]
     Active Substance: FOLIC ACID
     Dates: start: 20210223, end: 20210301
  42. MEGESTROL ACETATE. [Concomitant]
     Active Substance: MEGESTROL ACETATE
     Dates: start: 20200819, end: 20200825
  43. MEGESTROL ACETATE. [Concomitant]
     Active Substance: MEGESTROL ACETATE
     Dates: start: 20200720, end: 20200806
  44. RECOMBINANT HUMAN GRANULOCYTE COLONY?STIMULATING FACTOR INJECTION (REB [Concomitant]
     Dates: start: 20201118, end: 20201118
  45. RECOMBINANT HUMAN GRANULOCYTE COLONY?STIMULATING FACTOR INJECTION (REB [Concomitant]
     Dates: start: 20200813, end: 20200813
  46. RECOMBINANT HUMAN GRANULOCYTE COLONY?STIMULATING FACTOR INJECTION (REB [Concomitant]
     Dates: start: 20210115, end: 20210115
  47. RECOMBINANT HUMAN GRANULOCYTE COLONY?STIMULATING FACTOR INJECTION (REB [Concomitant]
     Dates: start: 20210118, end: 20210120
  48. CAPTOPRIL. [Concomitant]
     Active Substance: CAPTOPRIL
     Dates: start: 20210112, end: 20210112
  49. CALCIUM CARBONATE AND VITAMIN D3 [Concomitant]
     Active Substance: CALCIUM CARBONATE\CHOLECALCIFEROL
     Indication: COUGH
     Dates: start: 20201015, end: 20201021
  50. CARBOPLATIN. [Suspect]
     Active Substance: CARBOPLATIN
     Indication: NON-SMALL CELL LUNG CANCER
     Dosage: ACHIEVE AN INITIAL TARGET AUC OF 6 MG/ML/MIN.?ON 30/JUL/2020, HE RECEIVED MOST RECENT DOSE OF CARBOP
     Route: 042
     Dates: start: 20200730
  51. METHOXYPHENAMINE HYDROCHLORIDE [Concomitant]
     Active Substance: METHOXYPHENAMINE HYDROCHLORIDE
     Indication: COUGH
     Dosage: COMPOUND METHOXYPHENAMINE HYDROCHLORIDE CAPSULES
     Dates: start: 20200710, end: 20200721
  52. LIDOCAINE HYDROCHLORIDE. [Concomitant]
     Active Substance: LIDOCAINE HYDROCHLORIDE
     Indication: LOCAL ANAESTHESIA
     Dates: start: 20200728, end: 20200728
  53. PALONOSETRON HYDROCHLORIDE. [Concomitant]
     Active Substance: PALONOSETRON HYDROCHLORIDE
     Dates: start: 20201014, end: 20201014
  54. DEXAMETHASONE SODIUM PHOSPHATE. [Concomitant]
     Active Substance: DEXAMETHASONE SODIUM PHOSPHATE
     Route: 042
     Dates: start: 20200730, end: 20200730
  55. DEXAMETHASONE SODIUM PHOSPHATE. [Concomitant]
     Active Substance: DEXAMETHASONE SODIUM PHOSPHATE
     Route: 042
     Dates: start: 20201222, end: 20201222
  56. OMEPRAZOLE SODIUM [Concomitant]
     Active Substance: OMEPRAZOLE SODIUM
     Dates: start: 20200730, end: 20200730
  57. METOCLOPRAMIDE. [Concomitant]
     Active Substance: METOCLOPRAMIDE
     Indication: VOMITING
     Dates: start: 20200730, end: 20200730
  58. POLYENE PHOSPHATIDYLCHOLINE [Concomitant]
     Active Substance: PHOSPHOLIPID
     Dates: start: 20200730, end: 20200730
  59. POLYENE PHOSPHATIDYLCHOLINE [Concomitant]
     Active Substance: PHOSPHOLIPID
     Dates: start: 20210112, end: 20210112
  60. RECOMBINANT HUMAN GRANULOCYTE COLONY?STIMULATING FACTOR INJECTION (REB [Concomitant]
     Indication: WHITE BLOOD CELL COUNT INCREASED
     Dates: start: 20200817, end: 20200817
  61. RECOMBINANT HUMAN GRANULOCYTE COLONY?STIMULATING FACTOR INJECTION (REB [Concomitant]
     Dates: start: 20201020, end: 20201020
  62. RECOMBINANT HUMAN GRANULOCYTE COLONY?STIMULATING FACTOR INJECTION (REB [Concomitant]
     Dates: start: 20210118, end: 20210118
  63. AMIODARONE HYDROCHLORIDE. [Concomitant]
     Active Substance: AMIODARONE HYDROCHLORIDE
     Dates: start: 20210316, end: 20210316
  64. CREATINE PHOSPHATE SODIUM [Concomitant]
     Active Substance: CREATINE
     Dates: start: 20210316, end: 20210322
  65. SODIUM BICARBONATE. [Concomitant]
     Active Substance: SODIUM BICARBONATE
     Dates: start: 20210315, end: 20210315
  66. RECOMBINANT HUMAN INTERLEUKIN?11 [Concomitant]
     Active Substance: OPRELVEKIN
     Indication: PLATELET COUNT INCREASED
     Dates: start: 20200813, end: 20200815
  67. RECOMBINANT HUMAN INTERLEUKIN?11 [Concomitant]
     Active Substance: OPRELVEKIN
     Dates: start: 20210311, end: 20210313
  68. BEVACIZUMAB. [Suspect]
     Active Substance: BEVACIZUMAB
     Indication: NON-SMALL CELL LUNG CANCER
     Dosage: ON 30/JUL/2020, HE RECEIVED MOST RECENT DOSE OF BEVACIZUMAB OF 920 MG PRIOR TO SERIOUS ADVERSE EVENT
     Route: 042
     Dates: start: 20200730
  69. METHOXYPHENAMINE HYDROCHLORIDE [Concomitant]
     Active Substance: METHOXYPHENAMINE HYDROCHLORIDE
     Dates: start: 20201212, end: 20201217
  70. DEXTROMETHORPHAN HYDROBROMIDE. [Concomitant]
     Active Substance: DEXTROMETHORPHAN HYDROBROMIDE
     Dates: start: 20200716, end: 20200721
  71. PALONOSETRON HYDROCHLORIDE. [Concomitant]
     Active Substance: PALONOSETRON HYDROCHLORIDE
     Dosage: GIVEN FOR PROPHYLAXIS
     Dates: start: 20201105, end: 20201105
  72. PALONOSETRON HYDROCHLORIDE. [Concomitant]
     Active Substance: PALONOSETRON HYDROCHLORIDE
     Dates: start: 20210223, end: 20210223
  73. OMEPRAZOLE SODIUM [Concomitant]
     Active Substance: OMEPRAZOLE SODIUM
     Dates: start: 20201222, end: 20201222
  74. METOCLOPRAMIDE. [Concomitant]
     Active Substance: METOCLOPRAMIDE
     Dates: start: 20210102, end: 20210102
  75. METOCLOPRAMIDE. [Concomitant]
     Active Substance: METOCLOPRAMIDE
     Dates: start: 20201222, end: 20201222
  76. POLYENE PHOSPHATIDYLCHOLINE [Concomitant]
     Active Substance: PHOSPHOLIPID
     Dates: start: 20200918, end: 20200918
  77. SHENG XUE XIAO BAN JIAO NANG [Concomitant]
     Indication: PLATELET COUNT INCREASED
     Dates: start: 20200819, end: 20200825
  78. RECOMBINANT HUMAN GRANULOCYTE COLONY?STIMULATING FACTOR INJECTION (REB [Concomitant]
     Dates: start: 20200922, end: 20200922
  79. RECOMBINANT HUMAN GRANULOCYTE COLONY?STIMULATING FACTOR INJECTION (REB [Concomitant]
     Dates: start: 20201203, end: 20201203
  80. FUROSEMIDE. [Concomitant]
     Active Substance: FUROSEMIDE
     Dates: start: 20210315, end: 20210322
  81. FUROSEMIDE. [Concomitant]
     Active Substance: FUROSEMIDE
     Dates: start: 20210316, end: 20210320
  82. IPRATROPIUM BROMIDE. [Concomitant]
     Active Substance: IPRATROPIUM BROMIDE
     Indication: DYSPNOEA
     Dates: start: 20210318, end: 20210322
  83. ENOXAPARIN SODIUM. [Concomitant]
     Active Substance: ENOXAPARIN SODIUM
     Dates: start: 20210316, end: 20210317
  84. MONTMORILLONITE [Concomitant]
     Active Substance: MONTMORILLONITE
     Indication: DIARRHOEA
     Dates: start: 20210311, end: 20210311
  85. BLINDED ATEZOLIZUMAB [Suspect]
     Active Substance: ATEZOLIZUMAB
     Indication: NON-SMALL CELL LUNG CANCER
     Dosage: DATE OF MOST RECENT DOSE OF BLINDED ATEZOLIZUMAB PRIOR SAE: 30/JUL/2020?DATE OF MOST RECENT DOSE PRI
     Route: 042
     Dates: start: 20200730
  86. VITAMIN B12 [Concomitant]
     Active Substance: CYANOCOBALAMIN
     Dates: start: 20201222, end: 20201222
  87. PALONOSETRON HYDROCHLORIDE. [Concomitant]
     Active Substance: PALONOSETRON HYDROCHLORIDE
     Dates: start: 20200918, end: 20200918
  88. DEXAMETHASONE SODIUM PHOSPHATE. [Concomitant]
     Active Substance: DEXAMETHASONE SODIUM PHOSPHATE
     Route: 042
     Dates: start: 20201014, end: 20201014
  89. OMEPRAZOLE SODIUM [Concomitant]
     Active Substance: OMEPRAZOLE SODIUM
     Dates: start: 20200918, end: 20200918
  90. METOCLOPRAMIDE. [Concomitant]
     Active Substance: METOCLOPRAMIDE
     Dates: start: 20210112, end: 20210112
  91. POLYENE PHOSPHATIDYLCHOLINE [Concomitant]
     Active Substance: PHOSPHOLIPID
     Dates: start: 20200828, end: 20200828
  92. FOLIC ACID. [Concomitant]
     Active Substance: FOLIC ACID
     Dates: start: 20210113, end: 20210119
  93. FOLIC ACID. [Concomitant]
     Active Substance: FOLIC ACID
     Dates: start: 20210202, end: 20210208
  94. ERYTHROPOIETIN [Concomitant]
     Active Substance: ERYTHROPOIETIN
     Dates: start: 20200806
  95. RECOMBINANT HUMAN GRANULOCYTE COLONY?STIMULATING FACTOR INJECTION (REB [Concomitant]
     Dates: start: 20200910, end: 20200910
  96. RECOMBINANT HUMAN GRANULOCYTE COLONY?STIMULATING FACTOR INJECTION (REB [Concomitant]
     Dates: start: 20201103, end: 20201103
  97. RECOMBINANT HUMAN GRANULOCYTE COLONY?STIMULATING FACTOR INJECTION (REB [Concomitant]
     Dates: start: 20201017, end: 20201017
  98. RECOMBINANT HUMAN GRANULOCYTE COLONY?STIMULATING FACTOR INJECTION (REB [Concomitant]
     Dates: start: 20201027, end: 20201027
  99. RECOMBINANT HUMAN GRANULOCYTE COLONY?STIMULATING FACTOR INJECTION (REB [Concomitant]
     Dates: start: 20200806, end: 20200806
  100. RECOMBINANT HUMAN GRANULOCYTE COLONY?STIMULATING FACTOR INJECTION (REB [Concomitant]
     Dates: start: 20210108, end: 20210108
  101. ISOSORBIDE MONONITRATE. [Concomitant]
     Active Substance: ISOSORBIDE MONONITRATE
     Dates: start: 20210316, end: 20210322
  102. RIVAROXABAN [Concomitant]
     Active Substance: RIVAROXABAN
     Dates: start: 20210319, end: 20210320
  103. PSEUDOEPHEDRINE HYDROCHLORIDE. [Concomitant]
     Active Substance: PSEUDOEPHEDRINE HYDROCHLORIDE
     Indication: COUGH
     Dates: start: 20201015, end: 20201026
  104. RECOMBINANT HUMAN INTERLEUKIN?11 [Concomitant]
     Active Substance: OPRELVEKIN
     Dates: start: 20201208, end: 20201212
  105. AMBROXOL HYDROCHLORIDE [Concomitant]
     Active Substance: AMBROXOL HYDROCHLORIDE
     Dates: start: 20200716, end: 20200721
  106. AMBROXOL HYDROCHLORIDE [Concomitant]
     Active Substance: AMBROXOL HYDROCHLORIDE
     Dates: start: 20200729, end: 20200730
  107. VITAMIN B12 [Concomitant]
     Active Substance: CYANOCOBALAMIN
     Dates: start: 20200728, end: 20200728
  108. DEXTROMETHORPHAN HYDROBROMIDE. [Concomitant]
     Active Substance: DEXTROMETHORPHAN HYDROBROMIDE
     Indication: COUGH
     Dosage: DEXTROMETHORPHAN HYDROBROMIDE,?CHLORPHENIRAMINE MALEATE AND?PSEUDOEPHEDRINE HYDROCHLORIDE SOLUTION
     Dates: start: 20200728, end: 20200728
  109. PALONOSETRON HYDROCHLORIDE. [Concomitant]
     Active Substance: PALONOSETRON HYDROCHLORIDE
     Dates: start: 20210112, end: 20210112
  110. DEXAMETHASONE SODIUM PHOSPHATE. [Concomitant]
     Active Substance: DEXAMETHASONE SODIUM PHOSPHATE
     Dates: start: 20210112, end: 20210112
  111. OMEPRAZOLE SODIUM [Concomitant]
     Active Substance: OMEPRAZOLE SODIUM
     Dates: start: 20201014, end: 20201014
  112. METOCLOPRAMIDE. [Concomitant]
     Active Substance: METOCLOPRAMIDE
     Dates: start: 20200828, end: 20200828
  113. POLYENE PHOSPHATIDYLCHOLINE [Concomitant]
     Active Substance: PHOSPHOLIPID
     Dates: start: 20201014, end: 20201014
  114. MEGESTROL ACETATE. [Concomitant]
     Active Substance: MEGESTROL ACETATE
     Dates: start: 20201130, end: 20201205
  115. RECOMBINANT HUMAN GRANULOCYTE COLONY?STIMULATING FACTOR INJECTION (REB [Concomitant]
     Dates: start: 20201010, end: 20201010
  116. RECOMBINANT HUMAN GRANULOCYTE COLONY?STIMULATING FACTOR INJECTION (REB [Concomitant]
     Dates: start: 20201231, end: 20210104
  117. FUROSEMIDE. [Concomitant]
     Active Substance: FUROSEMIDE
     Indication: POLYURIA
     Dates: start: 20210202, end: 20210208
  118. ASPIRIN. [Concomitant]
     Active Substance: ASPIRIN
     Dates: start: 20210316, end: 20210320
  119. COENZYME Q10 [Concomitant]
     Active Substance: DIETARY SUPPLEMENT\UBIDECARENONE
     Dates: start: 20210318, end: 20210322
  120. PEMETREXED. [Suspect]
     Active Substance: PEMETREXED
     Indication: NON-SMALL CELL LUNG CANCER
     Dosage: ON 30/JUL/2020, HE RECEIVED MOST RECENT DOSE OF PEMETREXED OF 800 MG PRIOR TO SERIOUS ADVERSE EVENT.
     Route: 042
     Dates: start: 20200730
  121. PARACETAMOL AND DIHYDROCODEINE TARTRATE [Concomitant]
     Dates: start: 20200730, end: 20200805
  122. METHOXYPHENAMINE HYDROCHLORIDE [Concomitant]
     Active Substance: METHOXYPHENAMINE HYDROCHLORIDE
     Indication: PRODUCTIVE COUGH
     Dates: start: 20200729, end: 20200730
  123. VITAMIN B12 [Concomitant]
     Active Substance: CYANOCOBALAMIN
     Dates: start: 20200918, end: 20200918
  124. EUCALYPTOL, LIMONENE AND PINENE ENTERIC SOFT CAPSULES [Concomitant]
     Dates: start: 20200728, end: 20200728
  125. METOCLOPRAMIDE. [Concomitant]
     Active Substance: METOCLOPRAMIDE
     Dates: start: 20201202, end: 20201202
  126. FOLIC ACID. [Concomitant]
     Active Substance: FOLIC ACID
     Dates: start: 20200919, end: 20200925
  127. MEGESTROL ACETATE. [Concomitant]
     Active Substance: MEGESTROL ACETATE
     Dates: start: 20200919, end: 20200925
  128. RECOMBINANT HUMAN GRANULOCYTE COLONY?STIMULATING FACTOR INJECTION (REB [Concomitant]
     Indication: WHITE BLOOD CELL COUNT DECREASED
     Dates: start: 20200904, end: 20200904
  129. RECOMBINANT HUMAN GRANULOCYTE COLONY?STIMULATING FACTOR INJECTION (REB [Concomitant]
     Dates: start: 20201112, end: 20201112
  130. RECOMBINANT HUMAN GRANULOCYTE COLONY?STIMULATING FACTOR INJECTION (REB [Concomitant]
     Dates: start: 20201218, end: 20201218
  131. RECOMBINANT HUMAN GRANULOCYTE COLONY?STIMULATING FACTOR INJECTION (REB [Concomitant]
     Dates: start: 20210201, end: 20210201
  132. RECOMBINANT HUMAN GRANULOCYTE COLONY?STIMULATING FACTOR INJECTION (REB [Concomitant]
     Dates: start: 20201231, end: 20201231
  133. RECOMBINANT HUMAN GRANULOCYTE COLONY?STIMULATING FACTOR INJECTION (REB [Concomitant]
     Dates: start: 20210122, end: 20210128
  134. RECOMBINANT HUMAN GRANULOCYTE COLONY?STIMULATING FACTOR INJECTION (REB [Concomitant]
     Dates: start: 20210311, end: 20210311
  135. POLYENE PHOSPHATIDYLCHOLINE [Concomitant]
     Active Substance: PHOSPHOLIPID
     Dates: start: 20200918
  136. IVABRADINE HYDROCHLORIDE [Concomitant]
     Active Substance: IVABRADINE HYDROCHLORIDE
     Dates: start: 20210316, end: 20210316
  137. MONTELUKAST SODIUM. [Concomitant]
     Active Substance: MONTELUKAST SODIUM
     Indication: DYSPNOEA
     Dates: start: 20210318, end: 20210322
  138. CLOPIDOGREL BISULFATE. [Concomitant]
     Active Substance: CLOPIDOGREL BISULFATE
     Dates: start: 20210316, end: 20210318
  139. RECOMBINANT HUMAN INTERLEUKIN?11 [Concomitant]
     Active Substance: OPRELVEKIN
     Dates: start: 20201112, end: 20201114

REACTIONS (2)
  - Anaemia [Not Recovered/Not Resolved]
  - Neutrophil count decreased [Recovered/Resolved]

NARRATIVE: CASE EVENT DATE: 20200806
